FAERS Safety Report 9329641 (Version 1)
Quarter: 2013Q2

REPORT INFORMATION
  Report Type: Spontaneous
  Country: US (occurrence: US)
  Receive Date: 20130604
  Receipt Date: 20130604
  Transmission Date: 20140414
  Serious: No
  Sender: FDA-Public Use
  Company Number: US-SANOFI-AVENTIS-2013SA031976

PATIENT
  Age: 81 Year
  Sex: Male

DRUGS (2)
  1. SOLOSTAR [Suspect]
     Indication: DEVICE THERAPY
     Dates: start: 2011
  2. LANTUS SOLOSTAR [Suspect]
     Indication: TYPE 2 DIABETES MELLITUS
     Dosage: TAKEN FROM:2 YEARS AGO?DOSE:60 UNITS/18 UNITS?FREQUENCY-AM/PM
     Route: 051
     Dates: start: 2011

REACTIONS (2)
  - Injection site pain [Not Recovered/Not Resolved]
  - Movement disorder [Unknown]
